FAERS Safety Report 7867877-9 (Version None)
Quarter: 2011Q4

REPORT INFORMATION
  Report Type: 
  Country: None (occurrence: None)
  Receive Date: 20111025
  Receipt Date: 20111013
  Transmission Date: 20120403
  Serious: Yes (Other)
  Sender: FDA-Public Use
  Company Number: 1078173

PATIENT
  Age: 16 Year
  Sex: Male

DRUGS (13)
  1. VINCRISTINE SULFATE [Suspect]
     Indication: EWING'S SARCOMA
  2. DACTINOMYCIN [Suspect]
     Indication: EWING'S SARCOMA
  3. ETOPOSIDE [Suspect]
     Indication: EWING'S SARCOMA
  4. PHOSPHATE SANDOZ [Concomitant]
  5. LOPERAMIDE HCL [Concomitant]
  6. TOPIRAMATE [Concomitant]
  7. POTASSIUM BICARBONATE [Concomitant]
  8. FENTANYL [Concomitant]
  9. DOXORUBICIN HCL [Suspect]
     Indication: EWING'S SARCOMA
  10. IFOSFAMIDE [Suspect]
     Indication: EWING'S SARCOMA
  11. CYCLOPHOSPHAMIDE [Suspect]
     Indication: EWING'S SARCOMA
  12. THERAPEUTIC RADIOPHARMACEUTICALS [Suspect]
     Indication: EWING'S SARCOMA
  13. SODIUM BICARBONATE [Concomitant]

REACTIONS (9)
  - ENTERITIS [None]
  - PANCREATITIS [None]
  - HAEMODIALYSIS [None]
  - NEURALGIA [None]
  - NO THERAPEUTIC RESPONSE [None]
  - EWING'S SARCOMA RECURRENT [None]
  - RENAL TUBULAR ACIDOSIS [None]
  - TUBULOINTERSTITIAL NEPHRITIS [None]
  - HYPERTENSION [None]
